FAERS Safety Report 6469499-3 (Version None)
Quarter: 2009Q4

REPORT INFORMATION
  Report Type: 
  Country: None (occurrence: None)
  Receive Date: 20091203
  Receipt Date: 20091127
  Transmission Date: 20100525
  Serious: Yes (Hospitalization, Congenital Anomaly)
  Sender: FDA-Public Use
  Company Number: GB-BRISTOL-MYERS SQUIBB COMPANY-14697692

PATIENT
  Sex: Male

DRUGS (3)
  1. ABILIFY [Suspect]
     Route: 064
  2. TRIFLUOPERAZINE [Suspect]
     Route: 064
  3. LACTULOSE [Suspect]
     Route: 064

REACTIONS (1)
  - TRACHEO-OESOPHAGEAL FISTULA [None]
